FAERS Safety Report 5896262-4 (Version None)
Quarter: 2008Q3

REPORT INFORMATION
  Report Type: 
  Country: None (occurrence: None)
  Receive Date: 20080924
  Receipt Date: 20040603
  Transmission Date: 20090109
  Serious: No
  Sender: FDA-Public Use
  Company Number: US-BAYER-200418219BWH

PATIENT
  Sex: Female

DRUGS (2)
  1. CIPRO XR [Suspect]
     Indication: URINARY TRACT INFECTION
     Dosage: UNIT DOSE: 1000 MG
     Route: 048
  2. CIPRO XR [Suspect]
     Route: 048

REACTIONS (2)
  - CHEST PAIN [None]
  - DIZZINESS [None]
